FAERS Safety Report 17293895 (Version 1)
Quarter: 2020Q1

REPORT INFORMATION
  Report Type: Spontaneous
  Country: US (occurrence: US)
  Receive Date: 20200121
  Receipt Date: 20200121
  Transmission Date: 20200409
  Serious: No
  Sender: FDA-Public Use
  Company Number: US-SA-2020SA012262

PATIENT

DRUGS (2)
  1. CEFDINIR. [Suspect]
     Active Substance: CEFDINIR
  2. DUPIXENT [Suspect]
     Active Substance: DUPILUMAB
     Dosage: 300 MG, QOW
     Route: 058

REACTIONS (4)
  - Eye infection [Unknown]
  - Sinusitis [Unknown]
  - Ocular discomfort [Unknown]
  - Condition aggravated [Unknown]
